FAERS Safety Report 4909990-1 (Version None)
Quarter: 2006Q1

REPORT INFORMATION
  Report Type: 
  Country: None (occurrence: None)
  Receive Date: 20060208
  Receipt Date: 20060126
  Transmission Date: 20060701
  Serious: Yes (Other)
  Sender: FDA-Public Use
  Company Number: 2006003124

PATIENT
  Age: 59 Year
  Sex: Male

DRUGS (8)
  1. SULPERAZON (SULBACTAM, CEFOPERAZONE) [Suspect]
     Indication: CHOLANGITIS
     Dosage: 1 GRAM, INTRAVENOUS
     Route: 042
     Dates: start: 20051216, end: 20051216
  2. IOHEXOL (IOHEXOL) [Suspect]
     Indication: CHOLANGIOGRAM
     Dosage: 100 ML, INTRAVENOUS
     Route: 042
     Dates: start: 20051216, end: 20051216
  3. FIRSTCIN (CEFOZOPRAN HYDROCHLORIDE) [Suspect]
     Indication: CHOLANGITIS
     Dosage: 1 GRAM, INTRAVENOUS
     Route: 042
     Dates: start: 20051217, end: 20051217
  4. CIPROFLOXACIN HYDROCHLORIDE [Suspect]
     Indication: CHOLANGITIS
     Dosage: 300 MG
     Dates: start: 20051218, end: 20051218
  5. SOLU-CORTEF [Concomitant]
  6. VOLTAREN [Concomitant]
  7. STRONG NEO-MINOPHAGEN C (AMINOACETIC ACID, CYSTEINE, GLYCYRRHIZIC ACID [Concomitant]
  8. AMINOFLUID (AMINO ACIDS NOS, ELECTROLYTES NOS, GLUCOSE) [Concomitant]

REACTIONS (5)
  - CONDITION AGGRAVATED [None]
  - ELECTROCARDIOGRAM ST SEGMENT DEPRESSION [None]
  - GENERALISED ERYTHEMA [None]
  - HEPATIC FUNCTION ABNORMAL [None]
  - HEPATITIS A [None]
